FAERS Safety Report 16124083 (Version 1)
Quarter: 2019Q1

REPORT INFORMATION
  Report Type: Report from Study
  Country: US (occurrence: US)
  Receive Date: 20190327
  Receipt Date: 20190327
  Transmission Date: 20190418
  Serious: Yes (Other)
  Sender: FDA-Public Use
  Company Number: US-UCBSA-2019011482

PATIENT

DRUGS (1)
  1. LEVETIRACETAM. [Suspect]
     Active Substance: LEVETIRACETAM
     Indication: PRODUCT USED FOR UNKNOWN INDICATION
     Dosage: UNK

REACTIONS (7)
  - Benign neoplasm [Unknown]
  - Depression [Unknown]
  - Anger [Unknown]
  - Deja vu [Unknown]
  - Generalised tonic-clonic seizure [Unknown]
  - Scar [Unknown]
  - Crying [Unknown]
